FAERS Safety Report 18566261 (Version 2)
Quarter: 2021Q1

REPORT INFORMATION
  Report Type: Spontaneous
  Country: US (occurrence: US)
  Receive Date: 20201201
  Receipt Date: 20210130
  Transmission Date: 20210419
  Serious: Yes (Hospitalization)
  Sender: FDA-Public Use
  Company Number: US-TEVA-2020-US-1854854

PATIENT
  Age: 62 Year
  Sex: Female

DRUGS (2)
  1. TREPROSTINIL MDV TEVA [Suspect]
     Active Substance: TREPROSTINIL
     Indication: PULMONARY ARTERIAL HYPERTENSION
     Dosage: 64NG/KG/MIN CONTINUOUS IV
     Route: 042
     Dates: start: 201912
  2. TREPROSTINIL MDV TEVA [Suspect]
     Active Substance: TREPROSTINIL
     Dosage: 66NG/KG/MIN CONTINUOUS IV
     Route: 042
     Dates: start: 20191231

REACTIONS (4)
  - Arrhythmia [Unknown]
  - Feeling abnormal [Unknown]
  - Dyspnoea [Unknown]
  - Weight decreased [Unknown]

NARRATIVE: CASE EVENT DATE: 20210114
